FAERS Safety Report 25146511 (Version 2)
Quarter: 2025Q2

REPORT INFORMATION
  Report Type: Spontaneous
  Country: US (occurrence: US)
  Receive Date: 20250401
  Receipt Date: 20250404
  Transmission Date: 20250717
  Serious: No
  Sender: KYOWA
  Company Number: US-KYOWAKIRIN-2025KK005874

PATIENT

DRUGS (3)
  1. CRYSVITA [Suspect]
     Active Substance: BUROSUMAB-TWZA
     Indication: Hereditary hypophosphataemic rickets
     Dosage: 30 MG, 1X/2 WEEKS
     Route: 058
     Dates: start: 202006
  2. CRYSVITA [Suspect]
     Active Substance: BUROSUMAB-TWZA
     Dosage: 30 MG, 1X/2 WEEKS
     Route: 058
     Dates: start: 20250317
  3. CRYSVITA [Suspect]
     Active Substance: BUROSUMAB-TWZA
     Route: 065
     Dates: start: 20250331

REACTIONS (1)
  - Blood alkaline phosphatase increased [Not Recovered/Not Resolved]

NARRATIVE: CASE EVENT DATE: 20250313
